FAERS Safety Report 25343863 (Version 1)
Quarter: 2025Q2

REPORT INFORMATION
  Report Type: Spontaneous
  Country: US (occurrence: US)
  Receive Date: 20250521
  Receipt Date: 20250521
  Transmission Date: 20250716
  Serious: No
  Sender: SANOFI AVENTIS
  Company Number: US-SA-2025SA143381

PATIENT
  Age: 49 Year
  Sex: Female
  Weight: 113.64 kg

DRUGS (14)
  1. DUPIXENT [Suspect]
     Active Substance: DUPILUMAB
     Dosage: 300 MG, QOW
     Route: 058
  2. XTAMPZA ER [Concomitant]
     Active Substance: OXYCODONE
  3. CLINDAMYCIN [Concomitant]
     Active Substance: CLINDAMYCIN
  4. PREDNISONE [Concomitant]
     Active Substance: PREDNISONE
  5. MORPHINE SULFATE [Concomitant]
     Active Substance: MORPHINE SULFATE
  6. PREGABALIN [Concomitant]
     Active Substance: PREGABALIN
  7. ATROPINE SULFATE [Concomitant]
     Active Substance: ATROPINE SULFATE
  8. FAMOTIDINE [Concomitant]
     Active Substance: FAMOTIDINE
  9. CEFDINIR [Concomitant]
     Active Substance: CEFDINIR
  10. GAMMAGARD LIQUID [Concomitant]
     Active Substance: HUMAN IMMUNOGLOBULIN G
  11. SUMATRIPTAN SUCCINATE [Concomitant]
     Active Substance: SUMATRIPTAN SUCCINATE
  12. MOUNJARO [Concomitant]
     Active Substance: TIRZEPATIDE
  13. BUPROPION [Concomitant]
     Active Substance: BUPROPION
  14. PANTOPRAZOLE SODIUM [Concomitant]
     Active Substance: PANTOPRAZOLE SODIUM

REACTIONS (5)
  - Orbital swelling [Unknown]
  - Eye pain [Unknown]
  - Infection [Unknown]
  - Visual impairment [Unknown]
  - Nervous system disorder [Unknown]
